FAERS Safety Report 25371599 (Version 2)
Quarter: 2025Q2

REPORT INFORMATION
  Report Type: Spontaneous
  Country: CA (occurrence: CA)
  Receive Date: 20250529
  Receipt Date: 20250624
  Transmission Date: 20250716
  Serious: Yes (Other)
  Sender: UNITED THERAPEUTICS
  Company Number: CA-UNITED THERAPEUTICS-UNT-2025-018112

PATIENT
  Age: 8 Year
  Sex: Male

DRUGS (1)
  1. REMODULIN [Suspect]
     Active Substance: TREPROSTINIL
     Indication: Pulmonary arterial hypertension

REACTIONS (10)
  - Infusion site discharge [Unknown]
  - Purulent discharge [Unknown]
  - Infusion site haemorrhage [Unknown]
  - Infusion site swelling [Unknown]
  - Infusion site discolouration [Unknown]
  - Infusion site erythema [Unknown]
  - Body temperature increased [Unknown]
  - Infusion site cellulitis [Unknown]
  - Skin discolouration [Unknown]
  - Contusion [Unknown]

NARRATIVE: CASE EVENT DATE: 20250501
